FAERS Safety Report 11349696 (Version 1)
Quarter: 2015Q3

REPORT INFORMATION
  Report Type: Spontaneous
  Country: US (occurrence: None)
  Receive Date: 20150806
  Receipt Date: 20150806
  Transmission Date: 20151125
  Serious: Yes (Death)
  Sender: FDA-Public Use
  Company Number: None

PATIENT
  Age: 65 Year
  Sex: Male
  Weight: 90.72 kg

DRUGS (6)
  1. WARFARIN [Concomitant]
     Active Substance: WARFARIN
  2. DAILY VITAMIN [Concomitant]
     Active Substance: VITAMINS
  3. SIMVASTATN [Concomitant]
  4. OSTEO-BIFLEX [Concomitant]
  5. CITRACAL [Concomitant]
     Active Substance: CALCIUM CITRATE
  6. TIKOSYN [Suspect]
     Active Substance: DOFETILIDE
     Indication: ATRIAL FIBRILLATION
     Dosage: 1 PILL
     Route: 048

REACTIONS (1)
  - Cardiac arrest [None]
